FAERS Safety Report 7775496-8 (Version None)
Quarter: 2011Q3

REPORT INFORMATION
  Report Type: 
  Country: None (occurrence: None)
  Receive Date: 20110923
  Receipt Date: 20110922
  Transmission Date: 20111222
  Serious: Yes (Hospitalization)
  Sender: FDA-Public Use
  Company Number: PHHY2011NL84019

PATIENT
  Sex: Male

DRUGS (9)
  1. OXYCODONE HCL [Concomitant]
  2. ZOMETA [Suspect]
     Dosage: 4 MG/5 ML, 1X PER 21 DAYS
     Dates: start: 20110922
  3. ZOMETA [Suspect]
     Indication: PROSTATE CANCER
     Dosage: 4 MG/5 ML, 1X PER 21 DAYS
     Dates: start: 20110901
  4. MORPHINE [Concomitant]
  5. BICALUTAMIDE [Concomitant]
  6. CYPROTERONE ACETATE [Concomitant]
  7. DICLOFENAC [Concomitant]
  8. AVODART [Concomitant]
  9. LEUPROLIDE ACETATE [Concomitant]

REACTIONS (5)
  - PARAESTHESIA [None]
  - MOBILITY DECREASED [None]
  - MONOPLEGIA [None]
  - ASTHENIA [None]
  - PAIN [None]
